FAERS Safety Report 7607027-7 (Version None)
Quarter: 2011Q3

REPORT INFORMATION
  Report Type: 
  Country: None (occurrence: None)
  Receive Date: 20110706
  Receipt Date: 20110623
  Transmission Date: 20111222
  Serious: Yes (Hospitalization)
  Sender: FDA-Public Use
  Company Number: ALA_00183_2008

PATIENT
  Sex: Female
  Weight: 56.6996 kg

DRUGS (15)
  1. PROZAC [Concomitant]
  2. TRIMETHOPRIM [Concomitant]
  3. DITROPAN [Concomitant]
  4. NASAREL [Concomitant]
  5. REBIF [Concomitant]
  6. PRILOSEC [Concomitant]
  7. TYLENOL-500 [Concomitant]
  8. CLONAZEPAM [Concomitant]
  9. QVAR 40 [Concomitant]
  10. VALIUM [Concomitant]
  11. AMFETAMINE [Concomitant]
  12. REGLAN [Suspect]
     Indication: GASTROOESOPHAGEAL REFLUX DISEASE
     Dosage: 10 MG QD, ORAL
     Route: 048
     Dates: start: 20000101, end: 20080813
  13. NIFEDIPINE [Concomitant]
  14. ABLUTEROL [Concomitant]
  15. NIFEDIPINE [Concomitant]

REACTIONS (10)
  - MULTIPLE SCLEROSIS [None]
  - FALL [None]
  - PARKINSON'S DISEASE [None]
  - DYSPHAGIA [None]
  - BALANCE DISORDER [None]
  - LUMBAR VERTEBRAL FRACTURE [None]
  - CONCUSSION [None]
  - COMPRESSION FRACTURE [None]
  - PAIN IN JAW [None]
  - CONDITION AGGRAVATED [None]
